FAERS Safety Report 14893149 (Version 1)
Quarter: 2018Q2

REPORT INFORMATION
  Report Type: Spontaneous
  Country: US (occurrence: US)
  Receive Date: 20180514
  Receipt Date: 20180514
  Transmission Date: 20180711
  Serious: No
  Sender: FDA-Public Use
  Company Number: US-PERNIX THERAPEUTICS-US-2018PER001509

PATIENT
  Sex: Female

DRUGS (1)
  1. SILENOR [Suspect]
     Active Substance: DOXEPIN HYDROCHLORIDE
     Indication: INSOMNIA
     Dosage: 3 MG, UNK
     Route: 048
     Dates: start: 20170910

REACTIONS (11)
  - Malaise [Not Recovered/Not Resolved]
  - Coordination abnormal [Unknown]
  - Oropharyngeal pain [Unknown]
  - Speech disorder [Unknown]
  - Nausea [Unknown]
  - Dizziness [Unknown]
  - Diarrhoea [Unknown]
  - Nasal congestion [Unknown]
  - Vision blurred [Unknown]
  - Headache [Unknown]
  - Abnormal dreams [Unknown]

NARRATIVE: CASE EVENT DATE: 20170910
